FAERS Safety Report 19986067 (Version 2)
Quarter: 2021Q4

REPORT INFORMATION
  Report Type: Report from Study
  Country: TR (occurrence: None)
  Receive Date: 20211022
  Receipt Date: 20211222
  Transmission Date: 20220303
  Serious: Yes (Life-Threatening)
  Sender: FDA-Public Use
  Company Number: TR-ROCHE-2941447

PATIENT
  Age: 65 Year
  Sex: Male
  Weight: 80 kg

DRUGS (36)
  1. BEVACIZUMAB [Suspect]
     Active Substance: BEVACIZUMAB
     Indication: Bile duct cancer
     Dosage: THE START DATE OF MOST RECENT DOSE OF BLINDED BEVACIZUMAB PRIOR TO AE AND SAE (SERIOUS ADVERSE EVENT
     Route: 042
     Dates: start: 20210709
  2. ATEZOLIZUMAB [Suspect]
     Active Substance: ATEZOLIZUMAB
     Indication: Bile duct cancer
     Dosage: THE START DATE OF MOST RECENT DOSE OF ATEZOLIZUMAB (1200 MG) PRIOR TO AE AND SAE (SERIOUS ADVERSE EV
     Route: 042
     Dates: start: 20210709
  3. CISPLATIN [Suspect]
     Active Substance: CISPLATIN
     Indication: Bile duct cancer
     Dosage: THE START DATE OF MOST RECENT DOSE OF CISPLATIN (48.5 MG) PRIOR TO AE AND SAE (SERIOUS ADVERSE EVENT
     Route: 042
     Dates: start: 20210709
  4. GEMCITABINE [Suspect]
     Active Substance: GEMCITABINE
     Indication: Bile duct cancer
     Dosage: THE START DATE OF MOST RECENT DOSE OF GEMCITABINE (1940 MG) PRIOR TO AE AND SAE (SERIOUS ADVERSE EVE
     Route: 042
     Dates: start: 20210709
  5. ALATAB [Concomitant]
     Indication: Type 2 diabetes mellitus
  6. ULTROX (TURKEY) [Concomitant]
     Indication: Hyperlipidaemia
  7. CARVEDILOL [Concomitant]
     Active Substance: CARVEDILOL
  8. DIOVAN [Concomitant]
     Active Substance: VALSARTAN
  9. NYSTATIN [Concomitant]
     Active Substance: NYSTATIN
     Indication: Stomatitis
     Dates: start: 20210803, end: 20210927
  10. BLACK MULBERRY [Concomitant]
     Indication: Stomatitis
     Dates: start: 20210803, end: 20210927
  11. CARBONATE [Concomitant]
     Indication: Stomatitis
     Dates: start: 20210803, end: 20210927
  12. OFNOL [Concomitant]
     Indication: Conjunctivitis
     Dates: start: 20210806, end: 20210927
  13. ASPIRIN [Concomitant]
     Active Substance: ASPIRIN
     Dates: start: 20210804
  14. URSODIOL [Concomitant]
     Active Substance: URSODIOL
     Indication: Reflux gastritis
     Dates: start: 20210902
  15. METFORMIN HYDROCHLORIDE\VILDAGLIPTIN [Concomitant]
     Active Substance: METFORMIN HYDROCHLORIDE\VILDAGLIPTIN
     Indication: Type 2 diabetes mellitus
     Dates: start: 20210901
  16. PANTOPRAZOLE SODIUM [Concomitant]
     Active Substance: PANTOPRAZOLE SODIUM
     Dates: start: 20210901
  17. DUPHALAC [Concomitant]
     Active Substance: LACTULOSE
     Indication: Constipation
     Dates: start: 20210917, end: 20210921
  18. METOCLOPRAMIDE [Concomitant]
     Active Substance: METOCLOPRAMIDE
     Indication: Nausea
     Dates: start: 20210920
  19. LASIX [Concomitant]
     Active Substance: FUROSEMIDE
     Indication: Premedication
     Dates: start: 20210921, end: 20210921
  20. LASIX [Concomitant]
     Active Substance: FUROSEMIDE
     Dates: start: 20210927, end: 20210927
  21. LASIX [Concomitant]
     Active Substance: FUROSEMIDE
     Dates: start: 20211011, end: 20211011
  22. ALOXI [Concomitant]
     Active Substance: PALONOSETRON HYDROCHLORIDE
     Indication: Premedication
     Dates: start: 20210921, end: 20210921
  23. ALOXI [Concomitant]
     Active Substance: PALONOSETRON HYDROCHLORIDE
     Dates: start: 20210927, end: 20210927
  24. ALOXI [Concomitant]
     Active Substance: PALONOSETRON HYDROCHLORIDE
     Dates: start: 20211011, end: 20211011
  25. PHENIRAMINE [Concomitant]
     Active Substance: PHENIRAMINE
     Indication: Premedication
     Dates: start: 20210921, end: 20210921
  26. PHENIRAMINE [Concomitant]
     Active Substance: PHENIRAMINE
     Dates: start: 20210927, end: 20210927
  27. PHENIRAMINE [Concomitant]
     Active Substance: PHENIRAMINE
     Dates: start: 20211011, end: 20211011
  28. DEKORT [Concomitant]
     Active Substance: DEXAMETHASONE
     Indication: Premedication
     Route: 042
     Dates: start: 20210921, end: 20210921
  29. DEKORT [Concomitant]
     Active Substance: DEXAMETHASONE
     Route: 042
     Dates: start: 20210927, end: 20210927
  30. DEKORT [Concomitant]
     Active Substance: DEXAMETHASONE
     Route: 042
     Dates: start: 20211011, end: 20211011
  31. EMEND [Concomitant]
     Active Substance: APREPITANT
     Indication: Premedication
     Dates: start: 20210921, end: 20210921
  32. EMEND [Concomitant]
     Active Substance: APREPITANT
     Dates: start: 20211011, end: 20211011
  33. HUMAN RED BLOOD CELL [Concomitant]
     Active Substance: HUMAN RED BLOOD CELL
     Indication: Anaemia
     Dates: start: 20211011, end: 20211011
  34. AUGMENTIN [Concomitant]
     Active Substance: AMOXICILLIN\CLAVULANATE POTASSIUM
     Indication: Biliary tract infection
     Dates: start: 20211015, end: 20211023
  35. CIPRO [Concomitant]
     Active Substance: CIPROFLOXACIN HYDROCHLORIDE
     Indication: Biliary tract infection
     Dates: start: 20211015, end: 20211023
  36. PAROL [Concomitant]
     Active Substance: ACETAMINOPHEN
     Indication: Pyrexia
     Dates: start: 20211015, end: 20211015

REACTIONS (1)
  - White blood cell count decreased [Recovered/Resolved]

NARRATIVE: CASE EVENT DATE: 20211015
